FAERS Safety Report 17499150 (Version 2)
Quarter: 2020Q3

REPORT INFORMATION
  Report Type: Report from Study
  Country: ES (occurrence: ES)
  Receive Date: 20200304
  Receipt Date: 20200716
  Transmission Date: 20201102
  Serious: Yes (Life-Threatening, Hospitalization, Other)
  Sender: FDA-Public Use
  Company Number: ES-JNJFOC-20200300249

PATIENT
  Age: 37 Year
  Sex: Male
  Weight: 72 kg

DRUGS (6)
  1. RILPIVIRINE [Suspect]
     Active Substance: RILPIVIRINE
     Indication: HIV INFECTION
     Route: 030
     Dates: start: 20190322, end: 20190322
  2. RILPIVIRINE [Suspect]
     Active Substance: RILPIVIRINE
     Route: 030
     Dates: start: 20190417, end: 20191004
  3. CABOTEGRAVIR [Suspect]
     Active Substance: CABOTEGRAVIR
     Indication: HIV INFECTION
     Route: 030
     Dates: start: 20190322, end: 20190322
  4. ABACAVIR W/DOLUTEGRAVIR/LAMIVUDINE [Suspect]
     Active Substance: ABACAVIR SULFATE\DOLUTEGRAVIR SODIUM\LAMIVUDINE
     Indication: HIV INFECTION
     Dosage: INDUCTION PHASE
     Route: 048
     Dates: start: 20161130, end: 20170418
  5. CABOTEGRAVIR [Suspect]
     Active Substance: CABOTEGRAVIR
     Route: 030
     Dates: start: 20190417, end: 20191004
  6. ABACAVIR W/DOLUTEGRAVIR/LAMIVUDINE [Suspect]
     Active Substance: ABACAVIR SULFATE\DOLUTEGRAVIR SODIUM\LAMIVUDINE
     Dosage: REGIMEN 2
     Route: 048
     Dates: start: 20170419, end: 20190321

REACTIONS (1)
  - Hodgkin^s disease mixed cellularity stage unspecified [Recovered/Resolved]

NARRATIVE: CASE EVENT DATE: 20191009
